FAERS Safety Report 9511573 (Version 2)
Quarter: 2013Q3

REPORT INFORMATION
  Report Type: Spontaneous
  Country: VE (occurrence: VE)
  Receive Date: 20130910
  Receipt Date: 20130913
  Transmission Date: 20140515
  Serious: Yes (Death, Hospitalization, Other)
  Sender: FDA-Public Use
  Company Number: PHHY2013VE098455

PATIENT
  Age: 87 Year
  Sex: Female

DRUGS (3)
  1. FORADIL [Suspect]
     Indication: CHRONIC OBSTRUCTIVE PULMONARY DISEASE
     Dosage: 12 UG, EVERY 12 HOURS
     Dates: end: 20130904
  2. MIFLONIDE [Suspect]
     Indication: CHRONIC OBSTRUCTIVE PULMONARY DISEASE
     Dosage: 200 MG, EVERY 12 HOURS
     Dates: end: 20130904
  3. SPIRIVA [Concomitant]
     Indication: CHRONIC OBSTRUCTIVE PULMONARY DISEASE
     Dosage: UNK UKN, UNK
     Dates: end: 20130904

REACTIONS (4)
  - Respiratory disorder [Fatal]
  - Pleural effusion [Fatal]
  - Haemoptysis [Fatal]
  - Myocardial infarction [Recovered/Resolved]
